FAERS Safety Report 21879796 (Version 1)
Quarter: 2023Q1

REPORT INFORMATION
  Report Type: Spontaneous
  Country: US (occurrence: DK)
  Receive Date: 20230118
  Receipt Date: 20230118
  Transmission Date: 20230417
  Serious: Yes (Hospitalization, Other)
  Sender: FDA-Public Use
  Company Number: US-ABBVIE-4274871

PATIENT
  Sex: Male

DRUGS (1)
  1. TESTOSTERONE [Suspect]
     Active Substance: TESTOSTERONE
     Indication: Androgen deficiency
     Dosage: 50 MG
     Dates: start: 20221218, end: 20221228

REACTIONS (5)
  - Drug hypersensitivity [Recovering/Resolving]
  - Diarrhoea [Recovering/Resolving]
  - Rash [Unknown]
  - Vomiting [Recovering/Resolving]
  - Pruritus [Not Recovered/Not Resolved]
